FAERS Safety Report 7031400-1 (Version None)
Quarter: 2010Q4

REPORT INFORMATION
  Report Type: 
  Country: None (occurrence: None)
  Receive Date: 20101006
  Receipt Date: 20100806
  Transmission Date: 20110411
  Serious: No
  Sender: FDA-Public Use
  Company Number: US-BAYER-201029517NA

PATIENT
  Age: 61 Year
  Sex: Male

DRUGS (6)
  1. LEVITRA [Suspect]
     Indication: ERECTILE DYSFUNCTION
     Dosage: EVERY WEEK OR TWO
     Route: 048
     Dates: start: 20100201
  2. PLAVIX [Concomitant]
  3. SIMCOR [Concomitant]
  4. METOPROLOU [Concomitant]
  5. ZETIA [Concomitant]
  6. COZAAR [Concomitant]

REACTIONS (2)
  - DRUG INEFFECTIVE [None]
  - NAUSEA [None]
